FAERS Safety Report 8210315-7 (Version None)
Quarter: 2012Q1

REPORT INFORMATION
  Report Type: 
  Country: None (occurrence: None)
  Receive Date: 20120314
  Receipt Date: 20120106
  Transmission Date: 20120608
  Serious: No
  Sender: FDA-Public Use
  Company Number: US-ASTRAZENECA-2012SE01539

PATIENT
  Age: 63 Year
  Sex: Female

DRUGS (9)
  1. LANTUS [Concomitant]
  2. GLYBURIDE [Concomitant]
  3. ASPIRIN [Concomitant]
  4. HUMULIN R [Concomitant]
  5. LOSARTAN POTASSIUM [Concomitant]
  6. TOPROL-XL [Suspect]
     Route: 048
  7. KEFLEX [Concomitant]
  8. ATORVASTATIN [Concomitant]
  9. PLAVIX [Concomitant]

REACTIONS (3)
  - HYPERLIPIDAEMIA [None]
  - OSTEOARTHRITIS [None]
  - SYSTOLIC HYPERTENSION [None]
